FAERS Safety Report 17298054 (Version 1)
Quarter: 2020Q1

REPORT INFORMATION
  Report Type: Spontaneous
  Country: GB (occurrence: GB)
  Receive Date: 20200121
  Receipt Date: 20200121
  Transmission Date: 20200409
  Serious: No
  Sender: FDA-Public Use
  Company Number: RLC 2020-0014

PATIENT
  Sex: Female

DRUGS (1)
  1. PARACETOMOL MOLECULE FROM UK MARKET [Suspect]
     Active Substance: ACETAMINOPHEN
     Route: 048

REACTIONS (1)
  - Hypersensitivity [Unknown]
